FAERS Safety Report 12786899 (Version 1)
Quarter: 2016Q3

REPORT INFORMATION
  Report Type: Spontaneous
  Country: US (occurrence: US)
  Receive Date: 20160927
  Receipt Date: 20160927
  Transmission Date: 20161109
  Serious: Yes (Other)
  Sender: FDA-Public Use
  Company Number: US-RELYPSA-RLY2016002577

PATIENT
  Age: 75 Year
  Sex: Male

DRUGS (10)
  1. VELTASSA [Suspect]
     Active Substance: PATIROMER
     Indication: BLOOD POTASSIUM
     Dosage: 8.4 G, QD
     Route: 048
     Dates: start: 201607, end: 2016
  2. TIKOSYN [Concomitant]
     Active Substance: DOFETILIDE
     Dosage: 250 MG, BID
  3. ELIQUIS [Concomitant]
     Active Substance: APIXABAN
  4. ISOSORBIDE. [Concomitant]
     Active Substance: ISOSORBIDE
     Dosage: UNK
     Dates: end: 201609
  5. SPIRONOLACTONE. [Concomitant]
     Active Substance: SPIRONOLACTONE
  6. FLOMAX [Concomitant]
     Active Substance: TAMSULOSIN HYDROCHLORIDE
     Dosage: UNK, QW
  7. ASPIRIN                            /00002701/ [Concomitant]
     Active Substance: ASPIRIN
     Dosage: 81 MG, UNKNOWN
  8. DIGOXIN. [Concomitant]
     Active Substance: DIGOXIN
     Dosage: 125 THREE TIMES A WEEK
  9. CARVEDILOL. [Concomitant]
     Active Substance: CARVEDILOL
     Dosage: 3.125 UNK, UNK
  10. LIOTHYRONINE [Concomitant]
     Active Substance: LIOTHYRONINE
     Dosage: 0.125 UNK, QD

REACTIONS (4)
  - Arrhythmia [Unknown]
  - Constipation [Recovered/Resolved]
  - Abdominal pain [Recovered/Resolved]
  - Drug interaction [Unknown]

NARRATIVE: CASE EVENT DATE: 201607
